FAERS Safety Report 6941649-1 (Version None)
Quarter: 2010Q3

REPORT INFORMATION
  Report Type: 
  Country: None (occurrence: None)
  Receive Date: 20100825
  Receipt Date: 20100816
  Transmission Date: 20110219
  Serious: Yes (Hospitalization)
  Sender: FDA-Public Use
  Company Number: US-JNJFOC-20100807039

PATIENT
  Sex: Female
  Weight: 55.4 kg

DRUGS (21)
  1. REMICADE [Suspect]
     Indication: CROHN'S DISEASE
     Route: 042
  2. REMICADE [Suspect]
     Route: 042
  3. REMICADE [Suspect]
     Route: 042
  4. METHOTREXATE [Concomitant]
  5. MONTELUKAST SODIUM [Concomitant]
  6. NU-IRON [Concomitant]
  7. CALCIUM [Concomitant]
  8. MULTIPLE VITAMIN [Concomitant]
  9. OMEGA-3 FATTY ACIDS [Concomitant]
  10. PROAIR HFA [Concomitant]
  11. FLUTICASONE PROPIONATE [Concomitant]
  12. PRILOSEC [Concomitant]
  13. VITAMIN B6 [Concomitant]
  14. VITAMIN D [Concomitant]
  15. BENZO-AC 10% #1 OINTMENT [Concomitant]
  16. FOLIC ACID [Concomitant]
  17. MUPIROCIN CALCIUM [Concomitant]
  18. BACTROBAN [Concomitant]
  19. LACTAID [Concomitant]
  20. AMITRIPTYLINE HCL [Concomitant]
  21. ALBUTEROL [Concomitant]

REACTIONS (1)
  - ABDOMINAL PAIN [None]
